FAERS Safety Report 10553677 (Version 1)
Quarter: 2014Q4

REPORT INFORMATION
  Report Type: Report from Study
  Country: US (occurrence: US)
  Receive Date: 20141030
  Receipt Date: 20141030
  Transmission Date: 20150529
  Serious: Yes (Hospitalization)
  Sender: FDA-Public Use
  Company Number: PHEH2014US021268

PATIENT
  Age: 19 Year
  Sex: Male
  Weight: 60.77 kg

DRUGS (2)
  1. TOBI [Suspect]
     Active Substance: TOBRAMYCIN
     Indication: CYSTIC FIBROSIS
     Dosage: 300/5 MG/ML, BID
     Route: 065
  2. TOBI PODHALER [Suspect]
     Active Substance: TOBRAMYCIN
     Indication: CYSTIC FIBROSIS
     Dosage: 112 MG, BID
     Route: 055

REACTIONS (2)
  - Condition aggravated [Not Recovered/Not Resolved]
  - Cystic fibrosis [Not Recovered/Not Resolved]

NARRATIVE: CASE EVENT DATE: 20141020
